FAERS Safety Report 15815304 (Version 1)
Quarter: 2019Q1

REPORT INFORMATION
  Report Type: Spontaneous
  Country: SE (occurrence: SE)
  Receive Date: 20190112
  Receipt Date: 20190112
  Transmission Date: 20190417
  Serious: Yes (Other)
  Sender: FDA-Public Use
  Company Number: SE-TEVA-2019-SE-997936

PATIENT
  Age: 74 Year
  Sex: Female

DRUGS (9)
  1. ISCADOR QU [Concomitant]
  2. ENALAPRIL [Concomitant]
     Active Substance: ENALAPRIL
  3. ANASTROZOL SANDOZ [Concomitant]
  4. VITADORON [Concomitant]
  5. WARAN [Concomitant]
     Active Substance: WARFARIN SODIUM
  6. AMLODIPINE [Suspect]
     Active Substance: AMLODIPINE BESYLATE
     Dosage: STRENGTH: ^10/5 MG^
     Route: 048
     Dates: start: 20171127, end: 20180307
  7. BISOPROLOL KRKA [Concomitant]
     Active Substance: BISOPROLOL FUMARATE
  8. LEVAXIN [Concomitant]
     Active Substance: LEVOTHYROXINE SODIUM
  9. BETAPRED [Concomitant]
     Active Substance: BETAMETHASONE SODIUM PHOSPHATE

REACTIONS (4)
  - Nocturia [Recovered/Resolved]
  - Constipation [Recovered/Resolved]
  - Vasculitis [Recovered/Resolved]
  - Ageusia [Not Recovered/Not Resolved]

NARRATIVE: CASE EVENT DATE: 20171127
